FAERS Safety Report 7248300-4 (Version None)
Quarter: 2011Q1

REPORT INFORMATION
  Report Type: 
  Country: None (occurrence: None)
  Receive Date: 20110127
  Receipt Date: 20101216
  Transmission Date: 20110831
  Serious: Yes (Hospitalization, Other)
  Sender: FDA-Public Use
  Company Number: US-BAXTER-2010BH028044

PATIENT
  Age: 70 Year
  Sex: Female
  Weight: 65 kg

DRUGS (28)
  1. HEPARIN SODIUM INJECTION [Suspect]
     Route: 065
     Dates: start: 20081118, end: 20081118
  2. RESTORIL [Concomitant]
     Indication: PRODUCT USED FOR UNKNOWN INDICATION
     Route: 065
  3. HEPARIN SODIUM INJECTION [Suspect]
     Route: 042
     Dates: start: 20080225, end: 20080225
  4. HEPARIN SODIUM INJECTION [Suspect]
     Indication: ARTERIAL BYPASS OPERATION
     Route: 040
     Dates: start: 20080221, end: 20080221
  5. HEPARIN SODIUM INJECTION [Suspect]
     Indication: ANGIOPLASTY
     Route: 040
     Dates: start: 20080221, end: 20080221
  6. HEPARIN SODIUM INJECTION [Suspect]
     Route: 042
     Dates: start: 20080710, end: 20080710
  7. HEPARIN SODIUM INJECTION [Suspect]
     Route: 065
     Dates: start: 20081118, end: 20081118
  8. HEPARIN SODIUM INJECTION [Suspect]
     Route: 065
     Dates: start: 20081118, end: 20081118
  9. HEPARIN SODIUM INJECTION [Suspect]
     Indication: ARTERIAL THERAPEUTIC PROCEDURE
     Route: 040
     Dates: start: 20080221, end: 20080221
  10. HEPARIN SODIUM INJECTION [Suspect]
     Route: 013
     Dates: start: 20080225, end: 20080225
  11. HEPARIN SODIUM INJECTION [Suspect]
     Route: 042
     Dates: start: 20080225, end: 20080225
  12. LISINOPRIL [Concomitant]
     Indication: PRODUCT USED FOR UNKNOWN INDICATION
     Route: 065
  13. LOTREL [Concomitant]
     Indication: PRODUCT USED FOR UNKNOWN INDICATION
     Route: 048
  14. EVISTA [Concomitant]
     Indication: PRODUCT USED FOR UNKNOWN INDICATION
     Route: 048
  15. NAPROSYN [Concomitant]
     Indication: PRODUCT USED FOR UNKNOWN INDICATION
     Route: 065
  16. NITROGLYCERIN COMP. [Concomitant]
     Indication: ANGIOPLASTY
     Route: 065
     Dates: start: 20080221, end: 20080221
  17. HEPARIN SODIUM INJECTION [Suspect]
     Route: 042
     Dates: start: 20080225, end: 20080225
  18. HEPARIN SODIUM INJECTION [Suspect]
     Route: 042
     Dates: start: 20080228, end: 20080228
  19. AMLODIPINE [Concomitant]
     Indication: PRODUCT USED FOR UNKNOWN INDICATION
     Route: 065
  20. HEPARIN SODIUM INJECTION [Suspect]
     Route: 013
     Dates: start: 20080225, end: 20080225
  21. HEPARIN SODIUM INJECTION [Suspect]
     Route: 042
     Dates: start: 20080228, end: 20080228
  22. METOPROLOL [Concomitant]
     Indication: PRODUCT USED FOR UNKNOWN INDICATION
     Route: 048
  23. HEPARIN SODIUM INJECTION [Suspect]
     Route: 013
     Dates: start: 20080225, end: 20080225
  24. HEPARIN SODIUM INJECTION [Suspect]
     Route: 042
     Dates: start: 20080228, end: 20080228
  25. HEPARIN SODIUM INJECTION [Suspect]
     Route: 042
     Dates: start: 20080710, end: 20080710
  26. HEPARIN SODIUM INJECTION [Suspect]
     Route: 042
     Dates: start: 20080710, end: 20080710
  27. ASA [Concomitant]
     Indication: PRODUCT USED FOR UNKNOWN INDICATION
     Route: 048
  28. ALBUTEROL [Concomitant]
     Indication: PRODUCT USED FOR UNKNOWN INDICATION
     Route: 055

REACTIONS (25)
  - DRUG HYPERSENSITIVITY [None]
  - HAEMATOMA [None]
  - ATRIAL FIBRILLATION [None]
  - SUPRAVENTRICULAR TACHYCARDIA [None]
  - CATHETER SITE RELATED REACTION [None]
  - NAUSEA [None]
  - PRESYNCOPE [None]
  - FEMORAL ARTERIAL STENOSIS [None]
  - FLUSHING [None]
  - PERIPHERAL ISCHAEMIA [None]
  - VASCULAR PSEUDOANEURYSM [None]
  - LUNG INFILTRATION [None]
  - DIARRHOEA [None]
  - CARDIAC FAILURE CONGESTIVE [None]
  - PALPITATIONS [None]
  - RENAL ARTERY STENOSIS [None]
  - BRADYCARDIA [None]
  - DYSPNOEA [None]
  - HYPOTENSION [None]
  - OEDEMA PERIPHERAL [None]
  - FEMORAL ARTERY OCCLUSION [None]
  - PERIPHERAL ARTERIAL OCCLUSIVE DISEASE [None]
  - DIZZINESS [None]
  - DEPRESSION [None]
  - PAIN IN EXTREMITY [None]
